FAERS Safety Report 5469427-3 (Version None)
Quarter: 2007Q3

REPORT INFORMATION
  Report Type: 
  Country: None (occurrence: None)
  Receive Date: 20070927
  Receipt Date: 20070911
  Transmission Date: 20080115
  Serious: Yes (Disabling)
  Sender: FDA-Public Use
  Company Number: GB-ASTRAZENECA-2007SE05182

PATIENT
  Age: 83 Year
  Sex: Female
  Weight: 70 kg

DRUGS (4)
  1. AMIAS 8MG TABLETS [Suspect]
     Indication: HYPERTENSION
     Route: 048
     Dates: start: 20070411, end: 20070629
  2. BENDROFLUMETHIAZIDE [Concomitant]
     Indication: HYPERTENSION
     Route: 048
     Dates: start: 20000101
  3. CO-CODAMOL [Concomitant]
     Indication: PAIN
     Route: 048
     Dates: start: 20040101
  4. ZANIDIP [Concomitant]
     Indication: HYPERTENSION
     Route: 048
     Dates: start: 20060728

REACTIONS (1)
  - VISION BLURRED [None]
